FAERS Safety Report 10277278 (Version 1)
Quarter: 2014Q3

REPORT INFORMATION
  Report Type: Spontaneous
  Country: DE (occurrence: DE)
  Receive Date: 20140703
  Receipt Date: 20140703
  Transmission Date: 20150326
  Serious: Yes (Hospitalization)
  Sender: FDA-Public Use
  Company Number: DE-B.I. PHARMACEUTICALS,INC./RIDGEFIELD-2014-BI-29643DE

PATIENT
  Age: 85 Year
  Sex: Female

DRUGS (4)
  1. DRUG [Concomitant]
     Active Substance: UNSPECIFIED INGREDIENT
     Route: 065
  2. SIFROL [Suspect]
     Active Substance: PRAMIPEXOLE
     Indication: PARKINSON^S DISEASE
     Route: 065
     Dates: start: 2014
  3. DELIX [Concomitant]
     Active Substance: RAMIPRIL
     Route: 065
  4. MADOPAR [Concomitant]
     Active Substance: BENSERAZIDE HYDROCHLORIDE\LEVODOPA
     Route: 065

REACTIONS (3)
  - Sudden onset of sleep [Not Recovered/Not Resolved]
  - Bedridden [Unknown]
  - Drug ineffective [Unknown]
